FAERS Safety Report 8016340-3 (Version None)
Quarter: 2011Q4

REPORT INFORMATION
  Report Type: 
  Country: None (occurrence: None)
  Receive Date: 20111230
  Receipt Date: 20111220
  Transmission Date: 20120403
  Serious: Yes (Hospitalization)
  Sender: FDA-Public Use
  Company Number: US-MERCK-1109USA01918

PATIENT
  Age: 72 Year
  Sex: Female

DRUGS (3)
  1. FOSAMAX [Suspect]
     Indication: OSTEOPOROSIS
     Route: 048
     Dates: start: 20050901, end: 20080401
  2. FOSAMAX [Suspect]
     Route: 048
     Dates: start: 20041001
  3. FOSAMAX [Suspect]
     Route: 048

REACTIONS (18)
  - FALL [None]
  - TENDONITIS [None]
  - PAIN IN JAW [None]
  - MUSCLE SPASMS [None]
  - DRUG INEFFECTIVE [None]
  - POLYP [None]
  - ARTHROPATHY [None]
  - DIVERTICULUM INTESTINAL [None]
  - PAIN IN EXTREMITY [None]
  - ARTHRALGIA [None]
  - NEURALGIA [None]
  - ROTATOR CUFF SYNDROME [None]
  - PARAESTHESIA [None]
  - SINUSITIS [None]
  - FEMUR FRACTURE [None]
  - GASTROINTESTINAL DISORDER [None]
  - NODULE [None]
  - COUGH [None]
